FAERS Safety Report 8833624 (Version 1)
Quarter: 2012Q4

REPORT INFORMATION
  Report Type: Report from Study
  Country: CA (occurrence: CA)
  Receive Date: 20121010
  Receipt Date: 20121010
  Transmission Date: 20130627
  Serious: Yes (Other)
  Sender: FDA-Public Use
  Company Number: CA-JNJFOC-20121000606

PATIENT
  Age: 60 Year
  Sex: Male
  Weight: 86.3 kg

DRUGS (5)
  1. REMICADE [Suspect]
     Indication: PSORIASIS
     Route: 042
     Dates: start: 20120918
  2. PAXIL [Concomitant]
     Route: 065
  3. DIABETES MEDICATION [Concomitant]
     Indication: DIABETES MELLITUS
     Route: 065
  4. HYPERTENSION MEDICATION [Concomitant]
     Indication: HYPERTENSION
     Route: 065
  5. ASA [Concomitant]
     Route: 065

REACTIONS (2)
  - Hyperventilation [Unknown]
  - Dyspnoea [Unknown]
